FAERS Safety Report 12712222 (Version 3)
Quarter: 2016Q4

REPORT INFORMATION
  Report Type: Spontaneous
  Country: US (occurrence: US)
  Receive Date: 20160902
  Receipt Date: 20161115
  Transmission Date: 20170207
  Serious: Yes (Hospitalization)
  Sender: FDA-Public Use
  Company Number: US-JNJFOC-20160824136

PATIENT
  Age: 63 Year
  Sex: Male
  Weight: 83 kg

DRUGS (1)
  1. INVOKANA [Suspect]
     Active Substance: CANAGLIFLOZIN
     Indication: TYPE 2 DIABETES MELLITUS
     Route: 048
     Dates: start: 20150403, end: 20150511

REACTIONS (3)
  - Pancreatitis acute [Unknown]
  - Diabetic ketoacidosis [Unknown]
  - Acute kidney injury [Recovering/Resolving]

NARRATIVE: CASE EVENT DATE: 201505
